FAERS Safety Report 13099393 (Version 1)
Quarter: 2017Q1

REPORT INFORMATION
  Report Type: Report from Study
  Country: None (occurrence: GB)
  Receive Date: 20170109
  Receipt Date: 20170109
  Transmission Date: 20170428
  Serious: Yes (Hospitalization, Congenital Anomaly, Other)
  Sender: FDA-Public Use
  Company Number: GB-ABBVIE-16K-167-1808491-00

PATIENT
  Age: 47 Year
  Sex: Female
  Weight: 115.4 kg

DRUGS (5)
  1. HUMIRA [Suspect]
     Active Substance: ADALIMUMAB
     Indication: HIDRADENITIS
     Route: 058
     Dates: end: 2016
  2. TEICOPLANIN [Concomitant]
     Active Substance: TEICOPLANIN
     Indication: PRODUCT USED FOR UNKNOWN INDICATION
  3. RIFAMPICIN [Concomitant]
     Active Substance: RIFAMPIN
     Indication: HIDRADENITIS
     Route: 048
     Dates: start: 20160628, end: 20160923
  4. CLINDAMYCIN. [Concomitant]
     Active Substance: CLINDAMYCIN
     Indication: HIDRADENITIS
     Route: 048
     Dates: start: 20160623, end: 20160623
  5. HIBISCRUB [Concomitant]
     Active Substance: CHLORHEXIDINE GLUCONATE
     Indication: PRODUCT USED FOR UNKNOWN INDICATION
     Route: 061

REACTIONS (15)
  - Abdominal pain [Unknown]
  - Pelvic infection [Recovering/Resolving]
  - Tenderness [Unknown]
  - Abdominal tenderness [Unknown]
  - Computerised tomogram abdomen abnormal [Unknown]
  - Uterine mass [Unknown]
  - Ovarian enlargement [Unknown]
  - Hydrosalpinx [Unknown]
  - Salpingitis [Unknown]
  - General physical condition abnormal [Unknown]
  - Tubo-ovarian abscess [Recovering/Resolving]
  - Enteritis [Unknown]
  - Pelvic inflammatory disease [Not Recovered/Not Resolved]
  - Cholelithiasis [Unknown]
  - Costovertebral angle tenderness [Unknown]

NARRATIVE: CASE EVENT DATE: 20160923
